FAERS Safety Report 17420451 (Version 1)
Quarter: 2020Q1

REPORT INFORMATION
  Report Type: Spontaneous
  Country: US (occurrence: US)
  Receive Date: 20200130
  Receipt Date: 20200130
  Transmission Date: 20200409
  Serious: Yes (Hospitalization)
  Sender: FDA-Public Use
  Company Number: None

PATIENT
  Age: 71 Year
  Sex: Male

DRUGS (3)
  1. WARFARIN (WARFARIN NA (EXELAN) 2MG TAB [Suspect]
     Active Substance: WARFARIN
     Indication: ATRIAL FIBRILLATION
     Dates: start: 20121022
  2. WARFARIN (WARFARIN NA (EXELAN) 2MG TAB [Suspect]
     Active Substance: WARFARIN
     Indication: DEEP VEIN THROMBOSIS
  3. ASPIRIN(ASPIRIN 81MG TAB ,CHEWABLE) [Suspect]
     Active Substance: ASPIRIN
     Indication: CEREBROVASCULAR ACCIDENT PROPHYLAXIS
     Route: 048
     Dates: start: 20090101

REACTIONS (5)
  - Head injury [None]
  - Subarachnoid haemorrhage [None]
  - Cerebrovascular accident [None]
  - Cerebral haemorrhage [None]
  - Fall [None]

NARRATIVE: CASE EVENT DATE: 20191007
